FAERS Safety Report 25938864 (Version 2)
Quarter: 2025Q4

REPORT INFORMATION
  Report Type: Report from Study
  Country: US (occurrence: US)
  Receive Date: 20251019
  Receipt Date: 20251118
  Transmission Date: 20260118
  Serious: Yes (Hospitalization)
  Sender: ABBVIE
  Company Number: US-ABBVIE-6425703

PATIENT
  Age: 48 Year
  Sex: Male

DRUGS (1)
  1. RINVOQ [Suspect]
     Active Substance: UPADACITINIB
     Indication: Product used for unknown indication
     Route: 048
     Dates: start: 20250324

REACTIONS (10)
  - Blood viscosity decreased [Not Recovered/Not Resolved]
  - Oesophagitis [Not Recovered/Not Resolved]
  - Gastrointestinal pain [Not Recovered/Not Resolved]
  - Chills [Not Recovered/Not Resolved]
  - Gastritis [Not Recovered/Not Resolved]
  - Abdominal pain upper [Not Recovered/Not Resolved]
  - Gastrointestinal inflammation [Unknown]
  - Intestinal dilatation [Unknown]
  - Intestinal stenosis [Unknown]
  - Abscess [Unknown]

NARRATIVE: CASE EVENT DATE: 20250101
